FAERS Safety Report 4584176-1 (Version None)
Quarter: 2005Q1

REPORT INFORMATION
  Report Type: 
  Country: None (occurrence: None)
  Receive Date: 20050125
  Receipt Date: 20041203
  Transmission Date: 20050727
  Serious: No
  Sender: FDA-Public Use
  Company Number: USA041082633

PATIENT
  Age: 79 Year
  Sex: Female
  Weight: 63 kg

DRUGS (5)
  1. FORTEO [Suspect]
     Indication: OSTEOPOROSIS
     Dosage: 20 UG/1 DAY
     Dates: start: 20041012
  2. NORVASC [Concomitant]
  3. VITAMINS [Concomitant]
  4. TYLENOL (CAPLET) [Concomitant]
  5. GLUCOSAMINE CHONDROITIN [Concomitant]

REACTIONS (8)
  - ARTHRALGIA [None]
  - BACK PAIN [None]
  - FATIGUE [None]
  - FEELING ABNORMAL [None]
  - HEADACHE [None]
  - INSOMNIA [None]
  - PAIN [None]
  - PAIN IN EXTREMITY [None]
